FAERS Safety Report 21248539 (Version 1)
Quarter: 2022Q3

REPORT INFORMATION
  Report Type: Spontaneous
  Country: US (occurrence: None)
  Receive Date: 20220823
  Receipt Date: 20220823
  Transmission Date: 20221027
  Serious: Yes (Disabling)
  Sender: FDA-Public Use
  Company Number: None

PATIENT
  Age: 65 Year
  Sex: Female
  Weight: 59.4 kg

DRUGS (10)
  1. DULOXETINE [Suspect]
     Active Substance: DULOXETINE
     Indication: Arthralgia
     Dosage: FREQUENCY : AT BEDTIME;?
     Route: 048
     Dates: start: 20120630, end: 20190331
  2. DULOXETINE [Suspect]
     Active Substance: DULOXETINE
     Indication: Depression
  3. AUSTEDO [Concomitant]
     Active Substance: DEUTETRABENAZINE
  4. AMANTADINE [Concomitant]
     Active Substance: AMANTADINE
  5. ESCITALOPRAM [Concomitant]
     Active Substance: ESCITALOPRAM OXALATE
  6. AMITRIPTYLINE [Concomitant]
     Active Substance: AMITRIPTYLINE
  7. Vit E Lutein [Concomitant]
  8. VITAMIN D3 [Concomitant]
     Active Substance: CHOLECALCIFEROL
  9. Branch chain amino acids with 1 glutamine [Concomitant]
  10. TYLENOL [Concomitant]
     Active Substance: ACETAMINOPHEN

REACTIONS (4)
  - Trismus [None]
  - Tardive dyskinesia [None]
  - Mastication disorder [None]
  - Dystonia [None]

NARRATIVE: CASE EVENT DATE: 20190701
